FAERS Safety Report 4979592-X (Version None)
Quarter: 2006Q2

REPORT INFORMATION
  Report Type: 
  Country: None (occurrence: None)
  Receive Date: 20060418
  Receipt Date: 20060405
  Transmission Date: 20061013
  Serious: Yes (Hospitalization)
  Sender: FDA-Public Use
  Company Number: SUS1-2006-00374

PATIENT
  Age: 20 Year
  Sex: Male

DRUGS (1)
  1. PENTASA [Suspect]
     Indication: COLITIS ULCERATIVE
     Dosage: 750 MG, 3X/DAY; TID, ORAL
     Route: 048
     Dates: start: 20060301, end: 20060324

REACTIONS (4)
  - PERICARDITIS [None]
  - PLEURAL EFFUSION [None]
  - PLEURISY [None]
  - PYREXIA [None]
